FAERS Safety Report 9510106 (Version 1)
Quarter: 2013Q3

REPORT INFORMATION
  Report Type: Spontaneous
  Country: US (occurrence: US)
  Receive Date: 20130909
  Receipt Date: 20130909
  Transmission Date: 20140515
  Serious: No
  Sender: FDA-Public Use
  Company Number: US-BRISTOL-MYERS SQUIBB COMPANY-18766352

PATIENT
  Age: 18 Year
  Sex: Male

DRUGS (5)
  1. ABILIFY [Suspect]
     Indication: AUTISM SPECTRUM DISORDER
     Dosage: DOSE REDUCED FROM 30MG PO QD TO 10MG PO QD.
     Route: 048
  2. ABILIFY [Suspect]
     Indication: SCHIZOAFFECTIVE DISORDER
     Dosage: DOSE REDUCED FROM 30MG PO QD TO 10MG PO QD.
     Route: 048
  3. SEROQUEL [Suspect]
     Indication: SCHIZOAFFECTIVE DISORDER
     Dosage: REDUCED TO 50
  4. SEROQUEL [Suspect]
     Indication: AUTISM SPECTRUM DISORDER
     Dosage: REDUCED TO 50
  5. COGENTIN [Suspect]

REACTIONS (1)
  - Tardive dyskinesia [Not Recovered/Not Resolved]
